FAERS Safety Report 23757828 (Version 1)
Quarter: 2024Q2

REPORT INFORMATION
  Report Type: Report from Study
  Country: AR (occurrence: AR)
  Receive Date: 20240418
  Receipt Date: 20240418
  Transmission Date: 20240715
  Serious: Yes (Hospitalization, Other)
  Sender: FDA-Public Use
  Company Number: AR-TAKEDA-2024TUS035559

PATIENT
  Sex: Male

DRUGS (4)
  1. TEDUGLUTIDE [Suspect]
     Active Substance: TEDUGLUTIDE
     Indication: Short-bowel syndrome
     Dosage: 1 DOSAGE FORM, QD
     Route: 058
     Dates: start: 20230628
  2. TEDUGLUTIDE [Suspect]
     Active Substance: TEDUGLUTIDE
     Indication: Short-bowel syndrome
     Dosage: 1 DOSAGE FORM, QD
     Route: 058
     Dates: start: 20230628
  3. TEDUGLUTIDE [Suspect]
     Active Substance: TEDUGLUTIDE
     Indication: Short-bowel syndrome
     Dosage: 1 DOSAGE FORM, QD
     Route: 058
     Dates: start: 20230628
  4. TEDUGLUTIDE [Suspect]
     Active Substance: TEDUGLUTIDE
     Indication: Short-bowel syndrome
     Dosage: 1 DOSAGE FORM, QD
     Route: 058
     Dates: start: 20230628

REACTIONS (2)
  - Inguinal hernia [Recovering/Resolving]
  - Device occlusion [Recovering/Resolving]
